FAERS Safety Report 8533262 (Version 2)
Quarter: 2012Q4

REPORT INFORMATION
  Report Type: 
  Country: US (occurrence: US)
  Receive Date: 20120427
  Receipt Date: 20121026
  Transmission Date: 20130627
  Serious: Yes (Hospitalization)
  Sender: FDA-Public Use
  Company Number: US-BAYER-2012-040041

PATIENT
  Age: 37 Year
  Sex: Female
  Weight: 70.3 kg

DRUGS (16)
  1. OCELLA [Suspect]
     Indication: CONTRACEPTION
     Dosage: UNK
     Dates: start: 20080826, end: 20090102
  2. OCELLA [Suspect]
     Indication: PREMENSTRUAL DYSPHORIC DISORDER
  3. YAZ [Suspect]
     Indication: CONTRACEPTION
     Dosage: UNK
     Dates: start: 20090120, end: 20090514
  4. YAZ [Suspect]
     Indication: PREMENSTRUAL DYSPHORIC DISORDER
  5. TOPAMAX [Concomitant]
     Indication: MIGRAINE
     Dosage: 100 mg, daily
     Dates: start: 20070930, end: 20090331
  6. VENTOLIN [Concomitant]
     Indication: ASTHMA
     Dosage: UNK
     Dates: start: 200906
  7. FLOVENT [Concomitant]
     Indication: ASTHMA
     Dosage: UNK
     Dates: start: 1993
  8. IBUPROFEN [Concomitant]
     Dosage: UNK UNK, PRN
     Dates: start: 1993
  9. TORADOL [Concomitant]
     Dosage: 10 mg, every 8 hours as needed
     Dates: start: 1993
  10. CLONAZEPAM [Concomitant]
     Indication: ANXIETY
     Dosage: UNK
     Dates: start: 20080930, end: 20120522
  11. STRATTERA [Concomitant]
     Indication: ATTENTION DEFICIT DISORDER
     Dosage: UNK
     Dates: start: 20090125, end: 20120323
  12. ACETAMINOPHEN [Concomitant]
     Indication: PAIN
     Dosage: UNK
     Dates: start: 20070923, end: 20120215
  13. TOPIRAMATE [Concomitant]
     Indication: MIGRAINE
     Dosage: UNK
     Dates: start: 20090504, end: 20120208
  14. MELATONIN [Concomitant]
     Indication: RELAXATION
  15. BUPROPION [Concomitant]
     Dosage: 300 mg, daily
  16. KETOROLAC [Concomitant]
     Dosage: 10 mg, UNK

REACTIONS (18)
  - Pulmonary embolism [None]
  - Injury [None]
  - General physical health deterioration [None]
  - Fatigue [None]
  - Chest pain [None]
  - Dyspnoea [None]
  - Dizziness [None]
  - Lung disorder [None]
  - Tachycardia [None]
  - Pleurisy [None]
  - Depression [None]
  - Emotional distress [None]
  - Pain [None]
  - Anxiety [None]
  - Fear of death [None]
  - Anxiety [None]
  - Asthma [None]
  - Affective disorder [None]
